FAERS Safety Report 19440390 (Version 8)
Quarter: 2022Q3

REPORT INFORMATION
  Report Type: Report from Study
  Country: US (occurrence: US)
  Receive Date: 20210621
  Receipt Date: 20220624
  Transmission Date: 20221026
  Serious: No
  Sender: FDA-Public Use
  Company Number: NVSC2021US131419

PATIENT
  Age: 72 Year
  Sex: Male

DRUGS (6)
  1. ENTRESTO [Suspect]
     Active Substance: SACUBITRIL\VALSARTAN
     Indication: Cardiac failure
     Dosage: 50 MG, BID (24/26 MG)
     Route: 048
     Dates: start: 202010
  2. ENTRESTO [Suspect]
     Active Substance: SACUBITRIL\VALSARTAN
     Dosage: 50 MG, QD (24/26 MG)
     Route: 048
  3. FUROSEMIDE [Suspect]
     Active Substance: FUROSEMIDE
     Indication: Cardiac failure
     Dosage: 20 MG, QD
     Route: 048
     Dates: start: 2020
  4. FUROSEMIDE [Suspect]
     Active Substance: FUROSEMIDE
     Dosage: ONE TABLET EVERY OTHER DAY
     Route: 065
  5. METOPROLOL SUCCINATE [Suspect]
     Active Substance: METOPROLOL SUCCINATE
     Indication: Cardiac failure
     Dosage: 25 MG, QD
     Route: 048
  6. METOPROLOL SUCCINATE [Suspect]
     Active Substance: METOPROLOL SUCCINATE
     Dosage: 0.5 DOSAGE FORM (25 MG), QD
     Route: 048

REACTIONS (16)
  - Back pain [Unknown]
  - Pain [Unknown]
  - Somnolence [Recovered/Resolved]
  - Heart rate decreased [Recovering/Resolving]
  - Weight decreased [Recovering/Resolving]
  - Gait inability [Not Recovered/Not Resolved]
  - Hypotension [Unknown]
  - Fatigue [Unknown]
  - Musculoskeletal discomfort [Unknown]
  - Weight increased [Unknown]
  - Weight fluctuation [Unknown]
  - Micturition frequency decreased [Unknown]
  - Product use in unapproved indication [Unknown]
  - Exercise tolerance decreased [Unknown]
  - Arthritis [Unknown]
  - Inappropriate schedule of product administration [Unknown]

NARRATIVE: CASE EVENT DATE: 20210101
